FAERS Safety Report 12670907 (Version 1)
Quarter: 2016Q3

REPORT INFORMATION
  Report Type: Spontaneous
  Country: US (occurrence: None)
  Receive Date: 20160819
  Receipt Date: 20160819
  Transmission Date: 20161109
  Serious: Yes (Other)
  Sender: FDA-Public Use
  Company Number: None

PATIENT
  Age: 35 Year
  Sex: Female
  Weight: 88.45 kg

DRUGS (6)
  1. ALIGN PROBIOTIC [Concomitant]
  2. FLUDROCORTISONE [Concomitant]
     Active Substance: FLUDROCORTISONE
  3. HYDROCORTISONE. [Concomitant]
     Active Substance: HYDROCORTISONE
  4. CALCIUM VIACTIV-D [Concomitant]
  5. SYNTHROID [Concomitant]
     Active Substance: LEVOTHYROXINE SODIUM
  6. HYDROCORTISONE. [Suspect]
     Active Substance: HYDROCORTISONE
     Indication: ADRENAL INSUFFICIENCY
     Route: 048
     Dates: start: 20160629, end: 20160815

REACTIONS (5)
  - Headache [None]
  - Drug effect decreased [None]
  - Product substitution issue [None]
  - Blood cortisol decreased [None]
  - Emotional disorder [None]

NARRATIVE: CASE EVENT DATE: 20160712
